FAERS Safety Report 17227781 (Version 2)
Quarter: 2021Q1

REPORT INFORMATION
  Report Type: Spontaneous
  Country: NL (occurrence: NL)
  Receive Date: 20200103
  Receipt Date: 20210203
  Transmission Date: 20210419
  Serious: Yes (Hospitalization)
  Sender: FDA-Public Use
  Company Number: NL-AUROBINDO-AUR-APL-2019-109297

PATIENT
  Age: 74 Year
  Sex: Male

DRUGS (6)
  1. LITHIUM. [Suspect]
     Active Substance: LITHIUM
     Indication: BIPOLAR DISORDER
     Dosage: 900 MILLIGRAM, ONCE A DAY
     Route: 065
  2. IRBESARTAN AND HYDROCHLOROTHIAZIDE [Suspect]
     Active Substance: HYDROCHLOROTHIAZIDE\IRBESARTAN
     Indication: MYOCARDIAL ISCHAEMIA
     Dosage: 300/12MG, ONCE A DAY, (ADMINISTERED DAILY)
     Route: 065
  3. BETAXOLOL. [Concomitant]
     Active Substance: BETAXOLOL
     Indication: MYOCARDIAL ISCHAEMIA
     Dosage: 10 MILLIGRAM
     Route: 065
  4. EZETIMIBE;SIMVASTATIN [Concomitant]
     Active Substance: EZETIMIBE\SIMVASTATIN
     Indication: MYOCARDIAL ISCHAEMIA
     Dosage: 10/40 MG
     Route: 065
  5. LEVOTHYROXINE. [Concomitant]
     Active Substance: LEVOTHYROXINE
     Indication: HYPOTHYROIDISM
     Dosage: 50 MICROGRAM, ONCE A DAY
     Route: 065
  6. TRIFLUSAL [Suspect]
     Active Substance: TRIFLUSAL
     Indication: MYOCARDIAL ISCHAEMIA
     Dosage: 600 MILLIGRAM
     Route: 065

REACTIONS (12)
  - Sluggishness [Recovering/Resolving]
  - Nystagmus [Recovering/Resolving]
  - Tremor [Recovering/Resolving]
  - Toxicity to various agents [Recovering/Resolving]
  - Dysarthria [Recovering/Resolving]
  - Confusional state [Recovering/Resolving]
  - Ataxia [Recovering/Resolving]
  - Myoclonus [Recovering/Resolving]
  - Drug level increased [Recovering/Resolving]
  - Agitation [Recovering/Resolving]
  - Memory impairment [Recovering/Resolving]
  - Extrapyramidal disorder [Recovering/Resolving]
